FAERS Safety Report 7593640-2 (Version None)
Quarter: 2011Q3

REPORT INFORMATION
  Report Type: 
  Country: None (occurrence: None)
  Receive Date: 20110706
  Receipt Date: 20110630
  Transmission Date: 20111222
  Serious: Yes (Life-Threatening, Hospitalization, Other)
  Sender: FDA-Public Use
  Company Number: PHHO2010PL14730

PATIENT
  Sex: Male
  Weight: 96 kg

DRUGS (17)
  1. ENALAPRIL MALEATE [Suspect]
     Indication: CARDIAC FAILURE
     Dosage: 10 MG, BID
     Route: 048
     Dates: start: 20100305, end: 20100331
  2. FUROSEMIDE [Concomitant]
  3. BLINDED ALISKIREN [Suspect]
     Indication: CARDIAC FAILURE
     Dosage: CODE NOT BROKEN
     Route: 048
     Dates: start: 20100429, end: 20100918
  4. SPIRONOLACTONE [Suspect]
     Dosage: UNK
     Dates: start: 20110429
  5. CARVEDILOL [Concomitant]
  6. AMIODARONE HCL [Concomitant]
  7. ENALAPRIL MALEATE [Suspect]
     Indication: CARDIAC FAILURE
     Dosage: CODE NOT BROKEN
     Route: 048
     Dates: start: 20100429, end: 20100918
  8. TRIMETAZIDINE [Concomitant]
  9. ISOSORBIDE MONONITRATE [Concomitant]
  10. ACENOCOUMAROL [Concomitant]
  11. RAMIPRIL [Suspect]
     Dosage: UNK
     Dates: start: 20110429
  12. THEOPHYLLINE [Concomitant]
  13. POTASSIUM CHLORIDE [Suspect]
     Dosage: UNK
     Dates: start: 20110429
  14. BLINDED NO TREATMENT RECEIVED [Suspect]
     Indication: CARDIAC FAILURE
     Dosage: CODE NOT BROKEN
     Route: 048
     Dates: start: 20100429, end: 20100918
  15. ALISKIREN [Suspect]
     Indication: CARDIAC FAILURE
     Dosage: UNK
     Route: 048
     Dates: start: 20100401, end: 20100428
  16. ATORVASTATIN [Concomitant]
  17. GLICLAZIDE [Concomitant]
     Dosage: UNK

REACTIONS (3)
  - CONCOMITANT DISEASE PROGRESSION [None]
  - BRADYARRHYTHMIA [None]
  - HYPERKALAEMIA [None]
